FAERS Safety Report 8093804-8 (Version None)
Quarter: 2012Q1

REPORT INFORMATION
  Report Type: 
  Country: None (occurrence: None)
  Receive Date: 20120129
  Receipt Date: 20110928
  Transmission Date: 20120608
  Serious: No
  Sender: FDA-Public Use
  Company Number: US-ABBOTT-11P-163-0860039-00

PATIENT
  Sex: Female
  Weight: 72.186 kg

DRUGS (7)
  1. HYDROCHLOROTHIAZIDE [Concomitant]
     Indication: HYPERTENSION
  2. NORVASC [Concomitant]
     Indication: HYPERTENSION
  3. FERROUS SULFATE TAB [Concomitant]
     Indication: MINERAL SUPPLEMENTATION
  4. FOLIC ACID [Concomitant]
     Indication: PSORIATIC ARTHROPATHY
  5. HUMIRA [Suspect]
     Indication: PSORIATIC ARTHROPATHY
     Dates: start: 20110601
  6. CALCIUM [Concomitant]
     Indication: BONE DISORDER
  7. TRAMADOL HCL [Concomitant]
     Indication: PAIN

REACTIONS (2)
  - INJECTION SITE HAEMATOMA [None]
  - INJECTION SITE RASH [None]
